FAERS Safety Report 9803234 (Version 1)
Quarter: 2014Q1

REPORT INFORMATION
  Report Type: Spontaneous
  Country: US (occurrence: None)
  Receive Date: 20140107
  Receipt Date: 20140107
  Transmission Date: 20141002
  Serious: No
  Sender: FDA-Public Use
  Company Number: None

PATIENT
  Age: 41 Year
  Sex: Female
  Weight: 77.11 kg

DRUGS (1)
  1. NUVIGIL [Suspect]
     Indication: NARCOLEPSY
     Dates: start: 20131119, end: 20131122

REACTIONS (4)
  - Drug hypersensitivity [None]
  - Balance disorder [None]
  - Mania [None]
  - Suicidal ideation [None]
